FAERS Safety Report 16848347 (Version 1)
Quarter: 2019Q3

REPORT INFORMATION
  Report Type: Spontaneous
  Country: US (occurrence: US)
  Receive Date: 20190802
  Receipt Date: 20190802
  Transmission Date: 20191005
  Serious: No
  Sender: FDA-Public Use
  Company Number: None

PATIENT
  Age: 82 Year
  Sex: Female

DRUGS (1)
  1. AMBRISENTAN 5MG TABLETS 30/BO: 5MG [Suspect]
     Active Substance: AMBRISENTAN
     Indication: PULMONARY ARTERIAL HYPERTENSION
     Route: 048
     Dates: start: 20190726, end: 20190731

REACTIONS (5)
  - Oedema peripheral [None]
  - Dyspnoea [None]
  - Fluid retention [None]
  - Condition aggravated [None]
  - Chest discomfort [None]

NARRATIVE: CASE EVENT DATE: 20190731
